FAERS Safety Report 4988091-0 (Version None)
Quarter: 2006Q2

REPORT INFORMATION
  Report Type: 
  Country: None (occurrence: None)
  Receive Date: 20060425
  Receipt Date: 20060412
  Transmission Date: 20061013
  Serious: Yes (Other)
  Sender: FDA-Public Use
  Company Number: 200610485BNE

PATIENT
  Sex: Female

DRUGS (2)
  1. CIPROFLOXACIN [Suspect]
     Indication: GASTROENTERITIS
  2. PROCHLORPERAZINE [Concomitant]

REACTIONS (1)
  - HEPATORENAL SYNDROME [None]
